FAERS Safety Report 24273365 (Version 1)
Quarter: 2024Q3

REPORT INFORMATION
  Report Type: Spontaneous
  Country: ES (occurrence: ES)
  Receive Date: 20240902
  Receipt Date: 20240902
  Transmission Date: 20241017
  Serious: Yes (Other)
  Sender: ACCORD
  Company Number: None

PATIENT
  Age: 82 Year
  Sex: Female

DRUGS (4)
  1. QUETIAPINE [Suspect]
     Active Substance: QUETIAPINE
     Indication: Adjustment disorder with depressed mood
     Dosage: 100 MG EVERY 24 HOURS
     Dates: start: 20120820, end: 20240304
  2. ANAFRANIL [Suspect]
     Active Substance: CLOMIPRAMINE HYDROCHLORIDE
     Indication: Adjustment disorder with depressed mood
     Dosage: STRENGTH: 75 MG, 28 TABLETS, 75MG/24 HOURS
     Dates: start: 20231117, end: 20240304
  3. NEURONTIN [Concomitant]
     Active Substance: GABAPENTIN
     Indication: Pain
     Dosage: STRENGTH: 300 MG, 30 CAPSULES, 300MG EVERY 8 HOURS
     Dates: start: 20190522
  4. ROSUVASTATIN [Concomitant]
     Active Substance: ROSUVASTATIN\ROSUVASTATIN CALCIUM
     Indication: Dyslipidaemia
     Dosage: STRENGTH: 5 MG, 28 TABLETS (OPA/AL/PVCAL BLISTER),5MG EVERY DAY
     Dates: start: 20130129

REACTIONS (2)
  - Tremor [Recovering/Resolving]
  - Gait disturbance [Recovered/Resolved]

NARRATIVE: CASE EVENT DATE: 20240201
